FAERS Safety Report 21622815 (Version 1)
Quarter: 2022Q4

REPORT INFORMATION
  Report Type: Spontaneous
  Country: US (occurrence: US)
  Receive Date: 20221121
  Receipt Date: 20221121
  Transmission Date: 20230112
  Serious: Yes (Hospitalization)
  Sender: FDA-Public Use
  Company Number: US-AMNEAL PHARMACEUTICALS-2022-AMRX-03488

PATIENT
  Age: 57 Year
  Sex: Male

DRUGS (2)
  1. AMLODIPINE BESYLATE [Suspect]
     Active Substance: AMLODIPINE BESYLATE
     Indication: Suicide attempt
     Route: 065
  2. BENAZEPRIL HYDROCHLORIDE [Suspect]
     Active Substance: BENAZEPRIL HYDROCHLORIDE
     Indication: Suicide attempt
     Route: 065

REACTIONS (8)
  - Suicide attempt [Unknown]
  - Cardiac arrest [Unknown]
  - Shock [Unknown]
  - Renal impairment [Unknown]
  - Intentional overdose [Unknown]
  - Lactic acidosis [Unknown]
  - Electrolyte imbalance [Unknown]
  - Drug interaction [Unknown]
